FAERS Safety Report 7967692-1 (Version None)
Quarter: 2011Q4

REPORT INFORMATION
  Report Type: 
  Country: None (occurrence: None)
  Receive Date: 20111209
  Receipt Date: 20111207
  Transmission Date: 20120403
  Serious: Yes (Other)
  Sender: FDA-Public Use
  Company Number: US-PFIZER INC-2011299601

PATIENT
  Sex: Male
  Weight: 99.773 kg

DRUGS (3)
  1. LIPITOR [Suspect]
     Indication: BLOOD CHOLESTEROL INCREASED
     Dosage: 20 MG, DAILY
     Route: 048
     Dates: end: 20111027
  2. DIOVAN HCT [Concomitant]
     Indication: HYPERTENSION
     Dosage: 320/25 MG
  3. LIPITOR [Suspect]
     Dosage: 40 MG, DAILY
     Route: 048
     Dates: start: 20111028, end: 20111202

REACTIONS (3)
  - ARTERIAL OCCLUSIVE DISEASE [None]
  - MUSCLE SPASMS [None]
  - PAIN IN EXTREMITY [None]
